FAERS Safety Report 26147367 (Version 1)
Quarter: 2025Q4

REPORT INFORMATION
  Report Type: Spontaneous
  Country: MX (occurrence: MX)
  Receive Date: 20251211
  Receipt Date: 20251211
  Transmission Date: 20260118
  Serious: Yes (Death, Other)
  Sender: B. BRAUN MEDICAL INC.
  Company Number: MX-B. Braun Medical Inc.-MX-BBM-202504772

PATIENT
  Age: 53 Year
  Sex: Female

DRUGS (2)
  1. ACETAMINOPHEN [Suspect]
     Active Substance: ACETAMINOPHEN
     Indication: Intentional overdose
  2. CLONAZEPAM [Suspect]
     Active Substance: CLONAZEPAM
     Indication: Suicide attempt

REACTIONS (7)
  - Intentional overdose [Fatal]
  - Hepatotoxicity [Fatal]
  - Gastric haemorrhage [Fatal]
  - Shock [Fatal]
  - Metabolic acidosis [Fatal]
  - Nervous system disorder [Fatal]
  - Vomiting [Fatal]
